FAERS Safety Report 20659991 (Version 1)
Quarter: 2022Q1

REPORT INFORMATION
  Report Type: Spontaneous
  Country: US (occurrence: US)
  Receive Date: 20220331
  Receipt Date: 20220331
  Transmission Date: 20220423
  Serious: Yes (Other)
  Sender: FDA-Public Use
  Company Number: US-SLATE RUN PHARMACEUTICALS-22US001002

PATIENT

DRUGS (1)
  1. GANCICLOVIR [Suspect]
     Active Substance: GANCICLOVIR
     Indication: Human herpesvirus 6 encephalitis
     Dosage: UNK
     Route: 042

REACTIONS (3)
  - Drug ineffective for unapproved indication [Recovered/Resolved]
  - Aphasia [Recovered/Resolved]
  - Off label use [Recovered/Resolved]
